FAERS Safety Report 17215322 (Version 1)
Quarter: 2019Q4

REPORT INFORMATION
  Report Type: Spontaneous
  Country: US (occurrence: US)
  Receive Date: 20191206
  Receipt Date: 20191206
  Transmission Date: 20200122
  Serious: No
  Sender: FDA-Public Use
  Company Number: None

PATIENT
  Age: 37 Year
  Sex: Male

DRUGS (1)
  1. TALTZ [Suspect]
     Active Substance: IXEKIZUMAB
     Route: 058
     Dates: start: 201908

REACTIONS (5)
  - Head injury [None]
  - Pulmonary congestion [None]
  - Influenza like illness [None]
  - Peripheral swelling [None]
  - Grip strength decreased [None]

NARRATIVE: CASE EVENT DATE: 20191206
